FAERS Safety Report 5382858-5 (Version None)
Quarter: 2007Q3

REPORT INFORMATION
  Report Type: 
  Country: None (occurrence: None)
  Receive Date: 20070705
  Receipt Date: 20070618
  Transmission Date: 20080115
  Serious: Yes (Other)
  Sender: FDA-Public Use
  Company Number: TPA2007A01301

PATIENT
  Age: 76 Year
  Sex: Female
  Weight: 95.2554 kg

DRUGS (14)
  1. ACTOPLUS MET [Suspect]
     Indication: TYPE 2 DIABETES MELLITUS
     Dosage: 15/850 MG, TWICE DAILY, PER ORAL
     Route: 048
     Dates: start: 20070528, end: 20070601
  2. ENABLEX (ANTICHOLINERGIC AGENTS) [Concomitant]
  3. TRICOR [Concomitant]
  4. LISINOPRIL [Concomitant]
  5. CENTRUM (VITAMINS NOS, MINERALS NOS) [Concomitant]
  6. PRILOSEC [Concomitant]
  7. VITAMIN B6 [Concomitant]
  8. LEXAPRO [Concomitant]
  9. HYDROCHLOROTHIAZIDE [Concomitant]
  10. FOLIC ACID [Concomitant]
  11. CALCIUM (CALCIUM) [Concomitant]
  12. HYDROCODONE (HYDROCODONE) [Concomitant]
  13. LIPITOR [Concomitant]
  14. REQUIP [Concomitant]

REACTIONS (9)
  - ABDOMINAL PAIN UPPER [None]
  - BLOOD GLUCOSE INCREASED [None]
  - EYE DISORDER [None]
  - FATIGUE [None]
  - FEELING ABNORMAL [None]
  - NAUSEA [None]
  - SOMNOLENCE [None]
  - URTICARIA [None]
  - VOMITING [None]
